FAERS Safety Report 5893830-0 (Version None)
Quarter: 2008Q3

REPORT INFORMATION
  Report Type: 
  Country: None (occurrence: None)
  Receive Date: 20080923
  Receipt Date: 20080109
  Transmission Date: 20090109
  Serious: No
  Sender: FDA-Public Use
  Company Number: US-ASTRAZENECA-2007UW25146

PATIENT
  Age: 52 Year
  Sex: Female
  Weight: 45.4 kg

DRUGS (4)
  1. SEROQUEL [Suspect]
     Indication: BIPOLAR I DISORDER
     Route: 048
     Dates: end: 20070901
  2. OXYCONTIN [Concomitant]
     Indication: INTERVERTEBRAL DISC PROTRUSION
  3. XANAX [Concomitant]
  4. VITAMIN TAB [Concomitant]
     Indication: ANAEMIA

REACTIONS (1)
  - ILL-DEFINED DISORDER [None]
